FAERS Safety Report 6810699-8 (Version None)
Quarter: 2010Q2

REPORT INFORMATION
  Report Type: 
  Country: None (occurrence: None)
  Receive Date: 20100630
  Receipt Date: 20080201
  Transmission Date: 20101027
  Serious: No
  Sender: FDA-Public Use
  Company Number: US-PFIZER INC-2007064263

PATIENT
  Sex: Male
  Weight: 74.84 kg

DRUGS (6)
  1. NICOTINE [Suspect]
  2. WELLBUTRIN SR [Concomitant]
  3. ALL OTHER THERAPEUTIC PRODUCTS [Concomitant]
  4. ALLOPURINOL [Concomitant]
  5. COLCHICINE [Concomitant]
  6. VIAGRA [Concomitant]

REACTIONS (1)
  - DRUG INEFFECTIVE [None]
